FAERS Safety Report 8759232 (Version 1)
Quarter: 2012Q4

REPORT INFORMATION
  Report Type: 
  Country: US (occurrence: US)
  Receive Date: 20120829
  Receipt Date: 20120829
  Transmission Date: 20130627
  Serious: Yes (Hospitalization)
  Sender: FDA-Public Use
  Company Number: US-ASTRAZENECA-2010SE54504

PATIENT
  Age: 52 Year
  Sex: Female
  Weight: 124.7 kg

DRUGS (14)
  1. SEROQUEL XR [Suspect]
     Indication: SLEEP DISORDER
     Route: 048
  2. SEROQUEL XR [Suspect]
     Indication: BIPOLAR DISORDER
     Route: 048
  3. BLOOD PRESSURE MEDICINE [Concomitant]
  4. OTHER MEDICINES SHE CANNOT REMEMBER [Concomitant]
  5. METFORMIN [Concomitant]
     Indication: DIABETES MELLITUS
     Route: 048
  6. GLYBURIDE [Concomitant]
     Indication: DIABETES MELLITUS
  7. VISTARIL [Concomitant]
     Indication: MIGRAINE
  8. KLONOPIN [Concomitant]
     Indication: ANXIETY
  9. FLEXERIL [Concomitant]
     Indication: BACK PAIN
  10. BACLOFEN [Concomitant]
     Indication: BACK PAIN
  11. METOPROLOL [Concomitant]
     Indication: BLOOD PRESSURE
  12. PREMARIN [Concomitant]
     Indication: MENOPAUSE
  13. VITAMIN B12 [Concomitant]
  14. LORTAB [Concomitant]
     Indication: BACK PAIN
     Route: 048

REACTIONS (8)
  - Fall [Unknown]
  - Upper limb fracture [Unknown]
  - Anxiety [Unknown]
  - Menopause [Unknown]
  - Hyperhidrosis [Unknown]
  - Hypertension [Unknown]
  - Muscle spasms [Unknown]
  - Drug ineffective [Unknown]
